FAERS Safety Report 5321279-8 (Version None)
Quarter: 2007Q2

REPORT INFORMATION
  Report Type: 
  Country: None (occurrence: None)
  Receive Date: 20070507
  Receipt Date: 20070507
  Transmission Date: 20071010
  Serious: Yes (Other)
  Sender: FDA-Public Use
  Company Number: None

PATIENT
  Age: 77 Year
  Sex: Female
  Weight: 63.5036 kg

DRUGS (1)
  1. LEVAQUIN [Suspect]
     Indication: PREOPERATIVE CARE
     Dosage: 1 TABLET DAILY PO
     Route: 048
     Dates: start: 20070502, end: 20070502

REACTIONS (6)
  - DRUG INTOLERANCE [None]
  - HEART RATE INCREASED [None]
  - INSOMNIA [None]
  - MANIA [None]
  - NERVOUS SYSTEM DISORDER [None]
  - RESTLESSNESS [None]
